FAERS Safety Report 9246792 (Version 1)
Quarter: 2013Q2

REPORT INFORMATION
  Report Type: Spontaneous
  Country: FR (occurrence: FR)
  Receive Date: 20130422
  Receipt Date: 20130422
  Transmission Date: 20140414
  Serious: Yes (Hospitalization)
  Sender: FDA-Public Use
  Company Number: FR-BAXTER-2013BAX014145

PATIENT
  Age: 22 Year
  Sex: Female
  Weight: 65 kg

DRUGS (9)
  1. UROMITEXAN 5 G/50 ML, SOLUTION INJECTABLE POUR PERFUSION EN FLACON [Suspect]
     Indication: HODGKIN^S DISEASE
     Route: 042
     Dates: start: 20130312, end: 20130312
  2. UROMITEXAN 400, COMPRIME PELLICULE SECABLE [Suspect]
     Indication: HODGKIN^S DISEASE
     Route: 048
     Dates: start: 20130312, end: 20130312
  3. ONDANSETRON [Suspect]
     Indication: HODGKIN^S DISEASE
     Route: 048
     Dates: start: 20130312, end: 20130312
  4. ETOPOPHOS [Concomitant]
     Indication: PRODUCT USED FOR UNKNOWN INDICATION
     Route: 065
     Dates: start: 20130312
  5. ONCOVIN [Concomitant]
     Indication: PRODUCT USED FOR UNKNOWN INDICATION
     Route: 065
     Dates: start: 20130312
  6. DOXORUBICINE [Concomitant]
     Indication: PRODUCT USED FOR UNKNOWN INDICATION
     Route: 065
     Dates: start: 20130312
  7. ENDOXAN 100 MG, POUDRE POUR SOLUTION INJECTABLE [Concomitant]
     Indication: PRODUCT USED FOR UNKNOWN INDICATION
     Route: 065
     Dates: start: 20130312
  8. APREPITANT [Concomitant]
     Indication: PRODUCT USED FOR UNKNOWN INDICATION
     Route: 065
     Dates: start: 20130312
  9. BACTRIM [Concomitant]
     Indication: PROPHYLAXIS
     Route: 048
     Dates: start: 20130212

REACTIONS (4)
  - Anaphylactic reaction [Recovered/Resolved]
  - Rash papular [Recovered/Resolved]
  - Respiratory distress [None]
  - Chest discomfort [None]
